FAERS Safety Report 23689125 (Version 1)
Quarter: 2024Q1

REPORT INFORMATION
  Report Type: Spontaneous
  Country: US (occurrence: US)
  Receive Date: 20240330
  Receipt Date: 20240330
  Transmission Date: 20240410
  Serious: Yes (Hospitalization, Other)
  Sender: FDA-Public Use
  Company Number: US-GLAXOSMITHKLINE-US2024037471

PATIENT

DRUGS (1)
  1. LAMICTAL [Suspect]
     Active Substance: LAMOTRIGINE
     Indication: Bipolar disorder
     Dosage: 150 MG, BID ONE TABLET BY MOUTH
     Route: 048
     Dates: start: 2010

REACTIONS (8)
  - Spinal operation [Unknown]
  - Post procedural complication [Unknown]
  - Pyrexia [Unknown]
  - Decubitus ulcer [Not Recovered/Not Resolved]
  - Hypervolaemia [Unknown]
  - Condition aggravated [Unknown]
  - Fluid retention [Unknown]
  - Wound treatment [Unknown]

NARRATIVE: CASE EVENT DATE: 20230421
